FAERS Safety Report 6186974-X (Version None)
Quarter: 2009Q2

REPORT INFORMATION
  Report Type: 
  Country: None (occurrence: None)
  Receive Date: 20090508
  Receipt Date: 20090508
  Transmission Date: 20091009
  Serious: Yes (Other)
  Sender: FDA-Public Use
  Company Number: None

PATIENT
  Sex: Female
  Weight: 55.3 kg

DRUGS (2)
  1. LAMOTRIGINE [Suspect]
     Indication: CONVULSION
     Dosage: 2 X 200MG TABLS BID PO
     Route: 048
     Dates: start: 20090105, end: 20090301
  2. LAMOTRIGINE [Suspect]
     Indication: CONVULSION
     Dosage: 2 X 200MG TABS BID PO
     Route: 048

REACTIONS (3)
  - DIPLOPIA [None]
  - DRUG TOXICITY [None]
  - PRODUCT SUBSTITUTION ISSUE [None]
